FAERS Safety Report 5513450-7 (Version None)
Quarter: 2007Q4

REPORT INFORMATION
  Report Type: 
  Country: None (occurrence: None)
  Receive Date: 20071108
  Receipt Date: 20071024
  Transmission Date: 20080405
  Serious: Yes (Hospitalization)
  Sender: FDA-Public Use
  Company Number: MEDI-0006021

PATIENT
  Sex: Male
  Weight: 2.78 kg

DRUGS (4)
  1. SYNAGIS [Suspect]
     Indication: ANTIVIRAL PROPHYLAXIS
     Dosage: 15 MG/KG, INTRAMUSCULAR
     Route: 030
     Dates: start: 20061211, end: 20061211
  2. SYNAGIS [Suspect]
     Indication: ANTIVIRAL PROPHYLAXIS
     Dosage: 15 MG/KG, INTRAMUSCULAR
     Route: 030
     Dates: start: 20070212
  3. SYNAGIS [Suspect]
     Indication: ANTIVIRAL PROPHYLAXIS
     Dosage: 15 MG/KG, INTRAMUSCULAR
     Route: 030
     Dates: start: 20070323
  4. SYNAGIS [Suspect]
     Indication: ANTIVIRAL PROPHYLAXIS
     Dosage: 15 MG/KG, INTRAMUSCULAR
     Route: 030
     Dates: start: 20070509

REACTIONS (1)
  - ADENOVIRAL UPPER RESPIRATORY INFECTION [None]
